FAERS Safety Report 7350969-0 (Version None)
Quarter: 2011Q1

REPORT INFORMATION
  Report Type: 
  Country: None (occurrence: None)
  Receive Date: 20110314
  Receipt Date: 20101119
  Transmission Date: 20110831
  Serious: Yes (Other)
  Sender: FDA-Public Use
  Company Number: GB-BAYER-200833251GPV

PATIENT
  Age: 57 Year
  Sex: Female

DRUGS (7)
  1. ASPIRIN [Suspect]
     Indication: ANTIPLATELET THERAPY
     Route: 065
  2. BISOPROLOL FUMARATE [Concomitant]
     Indication: PRODUCT USED FOR UNKNOWN INDICATION
     Route: 065
  3. CLOPIDOGREL [Interacting]
     Indication: ANTIPLATELET THERAPY
     Route: 065
  4. ISOSORBIDE MONONITRATE [Concomitant]
     Indication: PRODUCT USED FOR UNKNOWN INDICATION
     Route: 065
  5. OMEPRAZOLE [Concomitant]
     Indication: PRODUCT USED FOR UNKNOWN INDICATION
     Route: 065
  6. SIMVASTATIN [Concomitant]
     Indication: PRODUCT USED FOR UNKNOWN INDICATION
     Route: 065
  7. TIBOLONE [Concomitant]
     Indication: PRODUCT USED FOR UNKNOWN INDICATION
     Route: 065

REACTIONS (7)
  - HAEMOGLOBIN DECREASED [None]
  - OCCULT BLOOD POSITIVE [None]
  - DYSPNOEA EXERTIONAL [None]
  - SYNCOPE [None]
  - PALLOR [None]
  - IRON DEFICIENCY ANAEMIA [None]
  - COLON CANCER [None]
